FAERS Safety Report 19614130 (Version 2)
Quarter: 2025Q4

REPORT INFORMATION
  Report Type: Spontaneous
  Country: CA (occurrence: CA)
  Receive Date: 20210727
  Receipt Date: 20251215
  Transmission Date: 20260118
  Serious: Yes (Other)
  Sender: BOEHRINGER INGELHEIM
  Company Number: CA-BOEHRINGERINGELHEIM-2021-BI-117164

PATIENT
  Age: 48 Year
  Sex: Male
  Weight: 69 kg

DRUGS (15)
  1. SPIRIVA [Suspect]
     Active Substance: TIOTROPIUM BROMIDE MONOHYDRATE
     Indication: Product used for unknown indication
  2. COMBIVENT [Suspect]
     Active Substance: ALBUTEROL SULFATE\IPRATROPIUM BROMIDE
     Indication: Product used for unknown indication
  3. TIOTROPIUM [Suspect]
     Active Substance: TIOTROPIUM
     Indication: Product used for unknown indication
  4. ALVESCO [Suspect]
     Active Substance: CICLESONIDE
     Indication: Product used for unknown indication
     Dosage: AEROSOL, METERED DOSE
  5. PREDNISONE [Suspect]
     Active Substance: PREDNISONE
     Indication: Product used for unknown indication
  6. ALBUTEROL [Suspect]
     Active Substance: ALBUTEROL
     Indication: Product used for unknown indication
  7. SINGULAIR [Suspect]
     Active Substance: MONTELUKAST SODIUM
     Indication: Product used for unknown indication
  8. FLOVENT [Suspect]
     Active Substance: FLUTICASONE PROPIONATE
     Indication: Product used for unknown indication
  9. NUCALA [Suspect]
     Active Substance: MEPOLIZUMAB
     Indication: Product used for unknown indication
  10. BUDESONIDE\FORMOTEROL [Suspect]
     Active Substance: BUDESONIDE\FORMOTEROL
     Indication: Product used for unknown indication
     Dosage: 2 EVERY 1 DAYS
  11. ALBUTEROL SULFATE\IPRATROPIUM BROMIDE [Suspect]
     Active Substance: ALBUTEROL SULFATE\IPRATROPIUM BROMIDE
     Indication: Product used for unknown indication
  12. PULMICORT TURBUHALER [Suspect]
     Active Substance: BUDESONIDE
     Indication: Product used for unknown indication
     Dosage: METERED-DOSE?(AEROSOL)
  13. SYMBICORT [Suspect]
     Active Substance: BUDESONIDE\FORMOTEROL FUMARATE DIHYDRATE
     Indication: Product used for unknown indication
  14. SYMBICORT [Suspect]
     Active Substance: BUDESONIDE\FORMOTEROL FUMARATE DIHYDRATE
     Dosage: POWDER
  15. AZITHROMYCIN [Concomitant]
     Active Substance: AZITHROMYCIN
     Indication: Product used for unknown indication

REACTIONS (21)
  - Asthma [Recovered/Resolved]
  - Cough [Recovered/Resolved]
  - Cystitis [Recovered/Resolved]
  - Kidney infection [Recovered/Resolved]
  - Pain [Recovered/Resolved]
  - Therapeutic product effect incomplete [Recovered/Resolved]
  - Full blood count abnormal [Recovered/Resolved]
  - Breath sounds abnormal [Recovered/Resolved]
  - Chest discomfort [Recovered/Resolved]
  - Eye swelling [Recovered/Resolved]
  - Haemoptysis [Recovered/Resolved]
  - Haemorrhage [Recovered/Resolved]
  - Loss of personal independence in daily activities [Recovered/Resolved]
  - Lymphadenopathy [Recovered/Resolved]
  - Night sweats [Recovered/Resolved]
  - Peripheral swelling [Recovered/Resolved]
  - Productive cough [Recovered/Resolved]
  - Rash erythematous [Recovered/Resolved]
  - Sleep disorder [Recovered/Resolved]
  - Weight decreased [Recovered/Resolved]
  - Wheezing [Recovered/Resolved]
